FAERS Safety Report 24152310 (Version 1)
Quarter: 2024Q3

REPORT INFORMATION
  Report Type: Spontaneous
  Country: US (occurrence: US)
  Receive Date: 20240730
  Receipt Date: 20240730
  Transmission Date: 20241016
  Serious: No
  Sender: PFIZER
  Company Number: US-PFIZER INC-202400226030

PATIENT
  Age: 54 Year
  Sex: Female

DRUGS (10)
  1. XELJANZ XR [Suspect]
     Active Substance: TOFACITINIB CITRATE
     Dosage: 11 MG, DAILY
     Route: 048
  2. LUMIGAN [Concomitant]
     Active Substance: BIMATOPROST
     Dosage: UNK (DROPS)
  3. VITAMIN D3 [Concomitant]
     Active Substance: CHOLECALCIFEROL
  4. ESTRADIOL [Concomitant]
     Active Substance: ESTRADIOL
  5. BETAMETHASONE DIPROPIONATE [Concomitant]
     Active Substance: BETAMETHASONE DIPROPIONATE
  6. HYOSCYAMINE SULFATE [Concomitant]
     Active Substance: HYOSCYAMINE SULFATE
  7. HERBALS\TURMERIC [Concomitant]
     Active Substance: HERBALS\TURMERIC
  8. SULFACLEANSE 8/4 [Concomitant]
     Active Substance: SULFACETAMIDE SODIUM\SULFUR
     Dosage: UNK (8-4 8 %-4 % SUSPENSION)
  9. PROGESTERONE [Concomitant]
     Active Substance: PROGESTERONE
  10. BIOTIN [Concomitant]
     Active Substance: BIOTIN
     Dosage: UNK

REACTIONS (2)
  - Illness [Not Recovered/Not Resolved]
  - Memory impairment [Unknown]
